FAERS Safety Report 14747996 (Version 4)
Quarter: 2018Q2

REPORT INFORMATION
  Report Type: Spontaneous
  Country: AT (occurrence: AT)
  Receive Date: 20180411
  Receipt Date: 20180508
  Transmission Date: 20180711
  Serious: Yes (Other)
  Sender: FDA-Public Use
  Company Number: AT-GILEAD-2018-0331969

PATIENT
  Age: 64 Year
  Sex: Male

DRUGS (10)
  1. ABACAVIR. [Concomitant]
     Active Substance: ABACAVIR
     Dosage: UNK
     Dates: start: 200208, end: 200404
  2. RALTEGRAVIR. [Concomitant]
     Active Substance: RALTEGRAVIR
     Dosage: UNK
     Dates: start: 201501
  3. DARUNAVIR [Concomitant]
     Active Substance: DARUNAVIR
     Dosage: UNK
  4. DESCOVY [Suspect]
     Active Substance: EMTRICITABINE\TENOFOVIR ALAFENAMIDE FUMARATE
     Indication: HIV INFECTION
     Dosage: UNK
     Route: 065
     Dates: start: 201702
  5. SAQUINAVIR [Concomitant]
     Active Substance: SAQUINAVIR
     Dosage: UNK
     Dates: start: 200308, end: 200401
  6. DARUNAVIR [Concomitant]
     Active Substance: DARUNAVIR
     Dosage: UNK
     Dates: start: 200307, end: 200308
  7. RITONAVIR. [Concomitant]
     Active Substance: RITONAVIR
     Dosage: UNK
     Dates: start: 200404
  8. DIDANOSINE. [Concomitant]
     Active Substance: DIDANOSINE
     Dosage: UNK
     Dates: start: 200208, end: 200901
  9. SAQUINAVIR [Concomitant]
     Active Substance: SAQUINAVIR
     Dosage: UNK
     Dates: start: 200212, end: 200307
  10. ATAZANAVIR. [Concomitant]
     Active Substance: ATAZANAVIR SULFATE
     Dosage: UNK
     Dates: start: 200401, end: 200507

REACTIONS (1)
  - Papilloedema [Unknown]

NARRATIVE: CASE EVENT DATE: 201711
